FAERS Safety Report 10110498 (Version 4)
Quarter: 2015Q1

REPORT INFORMATION
  Report Type: Spontaneous
  Country: US (occurrence: None)
  Receive Date: 20140421
  Receipt Date: 20150120
  Transmission Date: 20150720
  Serious: No
  Sender: FDA-Public Use
  Company Number: AEGR000341

PATIENT
  Age: 72 Year
  Sex: Female
  Weight: 72.6 kg

DRUGS (8)
  1. JUXTAPID [Suspect]
     Active Substance: LOMITAPIDE MESYLATE
     Indication: HYPERCHOLESTEROLAEMIA
     Route: 048
     Dates: start: 20140223, end: 20140618
  2. NAPROXEN SODIUM. [Concomitant]
     Active Substance: NAPROXEN SODIUM
  3. VYTORIN [Concomitant]
     Active Substance: EZETIMIBE\SIMVASTATIN
  4. SYNTHROID [Concomitant]
     Active Substance: LEVOTHYROXINE SODIUM
  5. CINNAMON. [Concomitant]
     Active Substance: CINNAMON
  6. CARDEDILOL [Concomitant]
     Active Substance: CARVEDILOL
  7. NORVASC [Concomitant]
     Active Substance: AMLODIPINE BESYLATE
  8. VITAMIN E [Concomitant]
     Active Substance: .ALPHA.-TOCOPHEROL

REACTIONS (17)
  - Off label use [None]
  - Dry skin [None]
  - Pollakiuria [None]
  - Constipation [None]
  - Abdominal pain upper [None]
  - Faecal volume decreased [None]
  - Abdominal discomfort [None]
  - Weight decreased [None]
  - Back pain [None]
  - Renal pain [None]
  - Gastric disorder [None]
  - Arthralgia [None]
  - Joint swelling [None]
  - Renal disorder [None]
  - Infrequent bowel movements [None]
  - Flatulence [None]
  - Skin wrinkling [None]

NARRATIVE: CASE EVENT DATE: 201402
